FAERS Safety Report 9032140 (Version 3)
Quarter: 2019Q4

REPORT INFORMATION
  Report Type: Spontaneous
  Country: US (occurrence: US)
  Receive Date: 20130122
  Receipt Date: 20191219
  Transmission Date: 20200122
  Serious: Yes (Hospitalization)
  Sender: FDA-Public Use
  Company Number: US-UCBSA-069430

PATIENT
  Age: 25 Year
  Sex: Female

DRUGS (4)
  1. PURINETHOL [Concomitant]
     Active Substance: MERCAPTOPURINE
  2. CIMZIA [Suspect]
     Active Substance: CERTOLIZUMAB PEGOL
     Indication: CROHN^S DISEASE
     Dosage: 200 MG, EV 2 WEEKS(QOW)
     Dates: start: 20090211, end: 20121228
  3. CIMZIA [Suspect]
     Active Substance: CERTOLIZUMAB PEGOL
     Dosage: 200 MG, EV 2 WEEKS(QOW)
  4. PENTASA [Concomitant]
     Active Substance: MESALAMINE

REACTIONS (5)
  - Anorectal disorder [Unknown]
  - Proctitis [Unknown]
  - Crohn^s disease [Not Recovered/Not Resolved]
  - Rectal abscess [Not Recovered/Not Resolved]
  - Infection [Unknown]

NARRATIVE: CASE EVENT DATE: 20130220
